FAERS Safety Report 16873943 (Version 2)
Quarter: 2025Q3

REPORT INFORMATION
  Report Type: Spontaneous
  Country: EU (occurrence: EU)
  Receive Date: 20191001
  Receipt Date: 20250701
  Transmission Date: 20251020
  Serious: Yes (Death, Life-Threatening, Hospitalization, Other)
  Sender: AUROBINDO
  Company Number: EU-MYLANLABS-2019M1091529

PATIENT
  Age: 60 Year
  Sex: Female

DRUGS (6)
  1. CAPECITABINE [Suspect]
     Active Substance: CAPECITABINE
     Indication: Invasive ductal breast carcinoma
     Route: 048
     Dates: start: 2017
  2. EPIRUBICIN [Suspect]
     Active Substance: EPIRUBICIN
     Indication: Invasive ductal breast carcinoma
     Route: 065
     Dates: start: 2014
  3. VINORELBINE [Suspect]
     Active Substance: VINORELBINE TARTRATE
     Indication: Invasive ductal breast carcinoma
     Route: 048
     Dates: start: 2017
  4. DOCETAXEL [Suspect]
     Active Substance: DOCETAXEL
     Indication: Invasive ductal breast carcinoma
     Route: 065
     Dates: start: 2014
  5. FLUOROURACIL [Suspect]
     Active Substance: FLUOROURACIL
     Indication: Invasive ductal breast carcinoma
     Route: 042
     Dates: start: 2014
  6. CYCLOPHOSPHAMIDE [Suspect]
     Active Substance: CYCLOPHOSPHAMIDE
     Indication: Invasive ductal breast carcinoma
     Route: 065
     Dates: start: 2014

REACTIONS (13)
  - Neutropenia [Fatal]
  - Thrombocytopenia [Fatal]
  - Sepsis [Fatal]
  - Renal impairment [Fatal]
  - Hepatic cytolysis [Fatal]
  - Mucosal inflammation [Fatal]
  - Palmar-plantar erythrodysaesthesia syndrome [Fatal]
  - Erythema [Fatal]
  - Vomiting [Fatal]
  - Nausea [Fatal]
  - Decreased appetite [Fatal]
  - Dermatitis exfoliative generalised [Fatal]
  - Coagulation factor decreased [Fatal]
